FAERS Safety Report 4423657-8 (Version None)
Quarter: 2004Q3

REPORT INFORMATION
  Report Type: 
  Country: None (occurrence: None)
  Receive Date: 20040714
  Receipt Date: 20040319
  Transmission Date: 20050211
  Serious: Yes (Other)
  Sender: FDA-Public Use
  Company Number: HQWYE064124MAR04

PATIENT
  Age: 34 Year
  Sex: Female
  Weight: 95.34 kg

DRUGS (2)
  1. ALAVERT [Suspect]
     Indication: EYE PRURITUS
     Dosage: 1 TABLET 1X PER 1 DAY, ORAL
     Route: 048
     Dates: start: 20040316, end: 20040318
  2. ALAVERT [Suspect]
     Indication: RHINORRHOEA
     Dosage: 1 TABLET 1X PER 1 DAY, ORAL
     Route: 048
     Dates: start: 20040316, end: 20040318

REACTIONS (1)
  - HEADACHE [None]
